FAERS Safety Report 9912038 (Version 2)
Quarter: 2014Q1

REPORT INFORMATION
  Report Type: Spontaneous
  Country: US (occurrence: US)
  Receive Date: 20140219
  Receipt Date: 20140219
  Transmission Date: 20141002
  Serious: Yes (Other)
  Sender: FDA-Public Use
  Company Number: US-GE HEALTHCARE MEDICAL DIAGNOSTICS-OSCN-PR-1103S-0094

PATIENT
  Age: 55 Year
  Sex: Female

DRUGS (5)
  1. OMNISCAN [Suspect]
     Indication: UNRESPONSIVE TO STIMULI
     Route: 042
     Dates: start: 20040720, end: 20040720
  2. OMNISCAN [Suspect]
     Indication: CONVULSION
  3. COUMADIN [Concomitant]
     Indication: EMBOLIC STROKE
  4. LABETALOL [Concomitant]
     Indication: PRODUCT USED FOR UNKNOWN INDICATION
  5. ZOCOR [Concomitant]
     Indication: PRODUCT USED FOR UNKNOWN INDICATION

REACTIONS (1)
  - Nephrogenic systemic fibrosis [Not Recovered/Not Resolved]
